FAERS Safety Report 4882992-X (Version None)
Quarter: 2006Q1

REPORT INFORMATION
  Report Type: 
  Country: None (occurrence: None)
  Receive Date: 20060112
  Receipt Date: 20051027
  Transmission Date: 20060701
  Serious: Yes (Death)
  Sender: FDA-Public Use
  Company Number: 2006-CZ-00188

PATIENT
  Sex: Male

DRUGS (4)
  1. BECLAZONE 200 INHALER (BECLOMETASONE) [Suspect]
  2. SALBUTAMOL TABLETS BP 2 MG (SALBUTAMOL) [Suspect]
  3. TIOTROPIUM BROMIDE (18 MICROGRAM) [Suspect]
  4. QUININE SULFATE [Suspect]

REACTIONS (1)
  - DEATH [None]
